FAERS Safety Report 11156682 (Version 2)
Quarter: 2015Q2

REPORT INFORMATION
  Report Type: Spontaneous
  Country: US (occurrence: US)
  Receive Date: 20150602
  Receipt Date: 20150619
  Transmission Date: 20150821
  Serious: Yes (Hospitalization, Other)
  Sender: FDA-Public Use
  Company Number: US-GLAXOSMITHKLINE INC.-US2015GSK074732

PATIENT
  Age: 36 Year
  Sex: Female
  Weight: 78.8 kg

DRUGS (5)
  1. ALPRAZOLAM. [Suspect]
     Active Substance: ALPRAZOLAM
     Indication: PRODUCT USED FOR UNKNOWN INDICATION
  2. MYLOTARG [Suspect]
     Active Substance: GEMTUZUMAB OZOGAMICIN
     Indication: ACUTE MYELOID LEUKAEMIA
     Dosage: 3 MG/M2, UNK
     Route: 042
     Dates: start: 20150512
  3. ZOLPIDEM [Suspect]
     Active Substance: ZOLPIDEM\ZOLPIDEM TARTRATE
     Indication: PRODUCT USED FOR UNKNOWN INDICATION
  4. ZOFRAN [Suspect]
     Active Substance: ONDANSETRON HYDROCHLORIDE
     Indication: VOMITING
  5. ZOFRAN [Suspect]
     Active Substance: ONDANSETRON HYDROCHLORIDE
     Indication: NAUSEA

REACTIONS (13)
  - Diarrhoea [Unknown]
  - Abdominal pain [Unknown]
  - Catheter site erythema [Unknown]
  - Nausea [Unknown]
  - Fatigue [Unknown]
  - Neutropenic sepsis [Recovering/Resolving]
  - Platelet transfusion [Unknown]
  - Malaise [Unknown]
  - Platelet count decreased [Unknown]
  - Vomiting [Unknown]
  - Catheter site pain [Unknown]
  - Catheter site infection [Unknown]
  - Drug ineffective [Unknown]

NARRATIVE: CASE EVENT DATE: 20150515
